FAERS Safety Report 13009738 (Version 3)
Quarter: 2016Q4

REPORT INFORMATION
  Report Type: Spontaneous
  Country: None (occurrence: BR)
  Receive Date: 20161208
  Receipt Date: 20161215
  Transmission Date: 20170207
  Serious: Yes (Hospitalization)
  Sender: FDA-Public Use
  Company Number: BR-MERCK KGAA-1060585

PATIENT

DRUGS (1)
  1. NOVOTHYROX [Suspect]
     Active Substance: LEVOTHYROXINE SODIUM

REACTIONS (7)
  - Product packaging issue [None]
  - Pneumonia [None]
  - Blood glucose increased [None]
  - Decreased immune responsiveness [None]
  - Thyroid disorder [None]
  - Alopecia [None]
  - Dyspnoea [None]
